FAERS Safety Report 5550513-4 (Version None)
Quarter: 2007Q4

REPORT INFORMATION
  Report Type: 
  Country: None (occurrence: None)
  Receive Date: 20071212
  Receipt Date: 20070504
  Transmission Date: 20080405
  Serious: No
  Sender: FDA-Public Use
  Company Number: US-AMGEN-KDL212723

PATIENT
  Sex: Female

DRUGS (2)
  1. ENBREL [Suspect]
     Indication: PSORIATIC ARTHROPATHY
     Route: 058
     Dates: start: 20060928
  2. NAPROSYN [Concomitant]

REACTIONS (4)
  - HAEMOGLOBIN DECREASED [None]
  - NASOPHARYNGITIS [None]
  - PAIN [None]
  - RED BLOOD CELL COUNT DECREASED [None]
